FAERS Safety Report 9847563 (Version 6)
Quarter: 2014Q2

REPORT INFORMATION
  Report Type: Spontaneous
  Country: JP (occurrence: JP)
  Receive Date: 20140128
  Receipt Date: 20140530
  Transmission Date: 20141212
  Serious: Yes (Hospitalization)
  Sender: FDA-Public Use
  Company Number: JP-009507513-1401JPN011570

PATIENT
  Age: 79 Year
  Sex: Male

DRUGS (1)
  1. JANUVIA TABLETS 12.5MG [Suspect]
     Indication: TYPE 2 DIABETES MELLITUS
     Dosage: UNK
     Route: 048
     Dates: start: 2010, end: 201305

REACTIONS (1)
  - Insulin autoimmune syndrome [Recovering/Resolving]
